FAERS Safety Report 7571934-4 (Version None)
Quarter: 2011Q2

REPORT INFORMATION
  Report Type: 
  Country: None (occurrence: None)
  Receive Date: 20110624
  Receipt Date: 20110203
  Transmission Date: 20111010
  Serious: No
  Sender: FDA-Public Use
  Company Number: A0911678A

PATIENT
  Age: 76 Year
  Sex: Male

DRUGS (9)
  1. ADVAIR DISKUS 100/50 [Concomitant]
  2. SIMVASTATIN [Concomitant]
  3. MULTIVITAMIN [Concomitant]
  4. ASPIRIN [Concomitant]
  5. SPIRIVA [Concomitant]
  6. OMEPRAZOLE [Concomitant]
  7. METOPROLOL TARTRATE [Concomitant]
  8. FLOMAX [Concomitant]
  9. VERAMYST [Suspect]
     Dosage: 2SPR PER DAY
     Route: 045
     Dates: start: 20110121

REACTIONS (6)
  - VISUAL IMPAIRMENT [None]
  - SWELLING [None]
  - DIPLOPIA [None]
  - LACRIMATION INCREASED [None]
  - VISION BLURRED [None]
  - EYE SWELLING [None]
